FAERS Safety Report 4343815-0 (Version None)
Quarter: 2004Q2

REPORT INFORMATION
  Report Type: 
  Country: None (occurrence: None)
  Receive Date: 20040419
  Receipt Date: 20040405
  Transmission Date: 20050107
  Serious: Yes (Hospitalization)
  Sender: FDA-Public Use
  Company Number: 205713

PATIENT
  Age: 45 Year
  Sex: Male

DRUGS (2)
  1. RITUXAN [Suspect]
     Indication: DERMATOMYOSITIS
     Dosage: INTRAVENOUS
     Route: 042
  2. DECADRON [Concomitant]

REACTIONS (2)
  - HYPOTENSION [None]
  - SYNCOPE [None]
